FAERS Safety Report 14293312 (Version 3)
Quarter: 2018Q1

REPORT INFORMATION
  Report Type: Not Available
  Country: US (occurrence: US)
  Receive Date: 20171215
  Receipt Date: 20180326
  Transmission Date: 20180509
  Serious: Yes (Hospitalization)
  Sender: FDA-Public Use
  Company Number: US-NEUROCRINE BIOSCIENCES INC.-2017NBI01783

PATIENT
  Age: 43 Year
  Sex: Female

DRUGS (15)
  1. INGREZZA [Suspect]
     Active Substance: VALBENAZINE
     Indication: PRODUCT USED FOR UNKNOWN INDICATION
     Route: 048
     Dates: start: 20170829, end: 20170905
  2. ATENOLOL. [Concomitant]
     Active Substance: ATENOLOL
  3. CLOZARIL [Concomitant]
     Active Substance: CLOZAPINE
  4. ZOVIRAX [Concomitant]
     Active Substance: ACYCLOVIR
  5. LEXAPRO [Concomitant]
     Active Substance: ESCITALOPRAM OXALATE
  6. DITROPAN XL [Concomitant]
     Active Substance: OXYBUTYNIN CHLORIDE
  7. FERROUS GLUCONATE [Concomitant]
     Active Substance: FERROUS GLUCONATE
  8. NIZORAL [Concomitant]
     Active Substance: KETOCONAZOLE
  9. ROBITUSSIN COLD COUGH PLUS CHEST [Concomitant]
  10. VITAMIN D3 COMPLETE [Concomitant]
  11. DOCUSATE SODIUM. [Concomitant]
     Active Substance: DOCUSATE SODIUM
  12. SPRINTEC 28 [Concomitant]
  13. IBUPROFEN. [Concomitant]
     Active Substance: IBUPROFEN
  14. INGREZZA [Suspect]
     Active Substance: VALBENAZINE
     Route: 048
     Dates: start: 20170906, end: 20171115
  15. HALDOL DECANOATE [Concomitant]
     Active Substance: HALOPERIDOL DECANOATE

REACTIONS (1)
  - Temporomandibular joint surgery [Unknown]

NARRATIVE: CASE EVENT DATE: 201711
